FAERS Safety Report 10374876 (Version 1)
Quarter: 2014Q3

REPORT INFORMATION
  Report Type: Spontaneous
  Country: US (occurrence: US)
  Receive Date: 20140811
  Receipt Date: 20140811
  Transmission Date: 20150326
  Serious: Yes (Other)
  Sender: FDA-Public Use
  Company Number: US-RB PHARMACEUTICALS LIMITED-RB-70274-2014

PATIENT

DRUGS (1)
  1. SUBOXONE [Suspect]
     Active Substance: BUPRENORPHINE HYDROCHLORIDE\NALOXONE HYDROCHLORIDE
     Indication: DRUG DEPENDENCE
     Dosage: 1 MG AT INTERVALS DURING THE DAY FOR 3-4 DAYS
     Route: 060
     Dates: end: 201407

REACTIONS (7)
  - Heart rate abnormal [Not Recovered/Not Resolved]
  - Wrong technique in drug usage process [Recovered/Resolved]
  - Blood pressure fluctuation [Not Recovered/Not Resolved]
  - Intentional underdose [Unknown]
  - Palpitations [Not Recovered/Not Resolved]
  - Inappropriate schedule of drug administration [Unknown]
  - Substance abuse [Recovered/Resolved]
